FAERS Safety Report 14850596 (Version 1)
Quarter: 2018Q2

REPORT INFORMATION
  Report Type: Report from Study
  Country: US (occurrence: US)
  Receive Date: 20180506
  Receipt Date: 20180506
  Transmission Date: 20180711
  Serious: No
  Sender: FDA-Public Use
  Company Number: US-IPSEN BIOPHARMACEUTICALS, INC.-2018-00569

PATIENT

DRUGS (1)
  1. SOMATULINE [Suspect]
     Active Substance: LANREOTIDE ACETATE
     Indication: PRODUCT USED FOR UNKNOWN INDICATION
     Dosage: NOT REPORTED
     Route: 065

REACTIONS (5)
  - Muscle spasms [Unknown]
  - Injection site haemorrhage [Unknown]
  - Drug effect decreased [Unknown]
  - Wrong technique in product usage process [Unknown]
  - Tenderness [Unknown]

NARRATIVE: CASE EVENT DATE: 201703
